FAERS Safety Report 16728538 (Version 1)
Quarter: 2019Q3

REPORT INFORMATION
  Report Type: Spontaneous
  Country: NG (occurrence: NG)
  Receive Date: 20190822
  Receipt Date: 20190822
  Transmission Date: 20191005
  Serious: Yes (Death)
  Sender: FDA-Public Use
  Company Number: NG-ROCHE-2375549

PATIENT
  Age: 55 Year
  Sex: Male

DRUGS (5)
  1. MABTHERA [Suspect]
     Active Substance: RITUXIMAB
     Indication: NON-HODGKIN^S LYMPHOMA
     Route: 042
  2. CYCLOPHOSPHAMIDE. [Concomitant]
     Active Substance: CYCLOPHOSPHAMIDE
  3. PREDNISONE. [Concomitant]
     Active Substance: PREDNISONE
  4. DOXORUBICIN [Concomitant]
     Active Substance: DOXORUBICIN
  5. VINCRISTINE [Concomitant]
     Active Substance: VINCRISTINE

REACTIONS (3)
  - Death [Fatal]
  - Non-Hodgkin^s lymphoma recurrent [Unknown]
  - Metastases to lymph nodes [Unknown]
